FAERS Safety Report 4823240-6 (Version None)
Quarter: 2005Q4

REPORT INFORMATION
  Report Type: 
  Country: None (occurrence: None)
  Receive Date: 20051108
  Receipt Date: 20051108
  Transmission Date: 20060501
  Serious: Yes (Hospitalization)
  Sender: FDA-Public Use
  Company Number: None

PATIENT
  Sex: Male
  Weight: 111.1313 kg

DRUGS (2)
  1. TOPAMAX [Suspect]
     Indication: APPETITE DISORDER
     Dosage: 100MG  HS PO
     Route: 048
  2. TOPAMAX [Suspect]
     Dosage: 25MG QAM PO
     Route: 048

REACTIONS (6)
  - ABNORMAL BEHAVIOUR [None]
  - AGGRESSION [None]
  - ARRHYTHMIA [None]
  - PSYCHOTIC DISORDER [None]
  - RASH [None]
  - VENTRICULAR EXTRASYSTOLES [None]
